FAERS Safety Report 9661825 (Version 2)
Quarter: 2013Q4

REPORT INFORMATION
  Report Type: Spontaneous
  Country: US (occurrence: US)
  Receive Date: 20131031
  Receipt Date: 20131031
  Transmission Date: 20140711
  Serious: Yes (Other)
  Sender: FDA-Public Use
  Company Number: US-NAPPMUNDI-USA-2010-0047395

PATIENT
  Age: 68 Year
  Sex: Female
  Weight: 77.1 kg

DRUGS (7)
  1. OXYCONTIN (NDA 22-272) [Suspect]
     Indication: PAIN
     Dosage: 160 MG, TID
     Route: 048
     Dates: start: 20100901
  2. ROXICODONE [Concomitant]
     Indication: BREAKTHROUGH PAIN
     Dosage: 60 MG, TID
  3. WELLBUTRIN [Concomitant]
     Indication: PRODUCT USED FOR UNKNOWN INDICATION
     Dosage: 150 MG, BID
  4. PREMARIN [Concomitant]
     Indication: PRODUCT USED FOR UNKNOWN INDICATION
     Dosage: 0.9 MG, SEE TEXT
  5. FLORINEF ACETATE [Concomitant]
     Indication: PRODUCT USED FOR UNKNOWN INDICATION
     Dosage: 0.1 MG, SEE TEXT
  6. XANAX [Concomitant]
     Indication: PRODUCT USED FOR UNKNOWN INDICATION
     Dosage: 2 MG, PRN
  7. CARPSOMA [Concomitant]
     Indication: PRODUCT USED FOR UNKNOWN INDICATION
     Dosage: 300 MG, TID

REACTIONS (13)
  - Hallucination [Recovered/Resolved]
  - Somnolence [Unknown]
  - Pruritus [Unknown]
  - Dry mouth [Unknown]
  - Drug effect decreased [Unknown]
  - Inadequate analgesia [Unknown]
  - Drug ineffective [Unknown]
  - Tremor [Unknown]
  - Confusional state [Unknown]
  - Hyperhidrosis [Unknown]
  - Insomnia [Unknown]
  - Headache [Unknown]
  - Nausea [Unknown]
